FAERS Safety Report 21081901 (Version 1)
Quarter: 2022Q3

REPORT INFORMATION
  Report Type: Spontaneous
  Country: FR (occurrence: FR)
  Receive Date: 20220714
  Receipt Date: 20220714
  Transmission Date: 20221027
  Serious: Yes (Hospitalization)
  Sender: FDA-Public Use
  Company Number: None

PATIENT
  Age: 25 Year
  Sex: Female

DRUGS (2)
  1. PAROXETINE [Suspect]
     Active Substance: PAROXETINE
     Indication: Product used for unknown indication
     Dosage: 840 MILLIGRAM (840 MG START DATE 21-JUL-2021)
     Route: 048
     Dates: end: 20210721
  2. CANNABIS SATIVA SUBSP. INDICA TOP [Suspect]
     Active Substance: CANNABIS SATIVA SUBSP. INDICA TOP
     Indication: Product used for unknown indication
     Dosage: UNK, QD (3 JOINTS/DAY)

REACTIONS (4)
  - Intentional self-injury [Recovered/Resolved with Sequelae]
  - Toxicity to various agents [Recovered/Resolved]
  - Nausea [Recovering/Resolving]
  - Drug abuse [Not Recovered/Not Resolved]

NARRATIVE: CASE EVENT DATE: 20210720
